FAERS Safety Report 8324412-9 (Version None)
Quarter: 2012Q1

REPORT INFORMATION
  Report Type: 
  Country: None (occurrence: None)
  Receive Date: 20120315
  Receipt Date: 20110520
  Transmission Date: 20120608
  Serious: No
  Sender: FDA-Public Use
  Company Number: PHHY2011US43898

PATIENT
  Age: 43 Year
  Sex: Female

DRUGS (1)
  1. GLIENYA (FTY) CAPSULE [Suspect]
     Dates: start: 20110517

REACTIONS (4)
  - HEADACHE [None]
  - NAUSEA [None]
  - CHILLS [None]
  - DIARRHOEA [None]
